FAERS Safety Report 5621110-7 (Version None)
Quarter: 2008Q1

REPORT INFORMATION
  Report Type: 
  Country: None (occurrence: None)
  Receive Date: 20080114
  Receipt Date: 20070118
  Transmission Date: 20080703
  Serious: Yes (Hospitalization)
  Sender: FDA-Public Use
  Company Number: A03200700639

PATIENT
  Age: 60 Year
  Sex: Female
  Weight: 72.56 kg

DRUGS (7)
  1. PLAVIX [Suspect]
     Indication: STENT PLACEMENT
     Dosage: 75 MG QD - ORAL
     Route: 048
     Dates: start: 20040914
  2. METOPROLOL TARTRATE [Concomitant]
  3. ENALAPRIL MALEATE [Concomitant]
  4. METFORMIN HCL [Concomitant]
  5. ALBUTEROL [Concomitant]
  6. GLYCERYL TRINITRATE [Concomitant]
  7. PRAVASTATIN SODIUM [Concomitant]

REACTIONS (2)
  - ANGINA PECTORIS [None]
  - CORONARY ARTERY OCCLUSION [None]
